FAERS Safety Report 16668476 (Version 1)
Quarter: 2019Q3

REPORT INFORMATION
  Report Type: Spontaneous
  Country: US (occurrence: US)
  Receive Date: 20190620
  Receipt Date: 20190620
  Transmission Date: 20191004
  Serious: Yes (Other)
  Sender: FDA-Public Use
  Company Number: None

PATIENT
  Age: 60 Year
  Sex: Female
  Weight: 60.1 kg

DRUGS (9)
  1. ATOVAQUONE. [Concomitant]
     Active Substance: ATOVAQUONE
  2. ATIVAN PRN [Concomitant]
  3. IMITREX PRN [Concomitant]
  4. ACYCLOVIR. [Concomitant]
     Active Substance: ACYCLOVIR
  5. IVIG MONTHLY (INFUSED BY HOME CARE) [Concomitant]
  6. ZOFRAN PRN [Concomitant]
  7. BENADRYL [Concomitant]
     Active Substance: DIPHENHYDRAMINE HYDROCHLORIDE
  8. IBUPROFEN. [Concomitant]
     Active Substance: IBUPROFEN
  9. IDELALISIB [Suspect]
     Active Substance: IDELALISIB
     Indication: BONE MARROW TRANSPLANT
     Route: 048
     Dates: start: 20181015, end: 20190410

REACTIONS (1)
  - Transaminases increased [None]

NARRATIVE: CASE EVENT DATE: 20190618
